FAERS Safety Report 9248275 (Version 1)
Quarter: 2013Q2

REPORT INFORMATION
  Report Type: Spontaneous
  Country: CA (occurrence: CA)
  Receive Date: 20130423
  Receipt Date: 20130423
  Transmission Date: 20140414
  Serious: Yes (Other)
  Sender: FDA-Public Use
  Company Number: CA-UCBSA-083508

PATIENT
  Sex: Male

DRUGS (3)
  1. VIMPAT [Suspect]
     Dosage: 200 MG
  2. VIMPAT [Suspect]
     Dosage: UNKNOWN DOSE
  3. PROPRANOLOL [Concomitant]
     Indication: ESSENTIAL TREMOR
     Dosage: UNKNOWN DOSE

REACTIONS (1)
  - Pulseless electrical activity [Unknown]
